FAERS Safety Report 18107639 (Version 1)
Quarter: 2020Q3

REPORT INFORMATION
  Report Type: Spontaneous
  Country: RO (occurrence: RO)
  Receive Date: 20200804
  Receipt Date: 20200804
  Transmission Date: 20201103
  Serious: Yes (Other)
  Sender: FDA-Public Use
  Company Number: RO-PFIZER INC-2020290660

PATIENT
  Age: 59 Year
  Weight: 64 kg

DRUGS (7)
  1. ZYVOXID [Suspect]
     Active Substance: LINEZOLID
     Dosage: UNK (600 MG)
     Dates: start: 20200611, end: 20200714
  2. ETIONAMIDA [Concomitant]
     Dosage: 250 MG, 2X/DAY
     Dates: start: 20200611
  3. CICLOSERINA ANTIBIOTICE [Concomitant]
     Dosage: 750 MG, DAILY
     Dates: start: 20200513
  4. BEDAQUILINE [Concomitant]
     Active Substance: BEDAQUILINE
     Dosage: 200 MG, 2X/DAY
     Dates: start: 20200611
  5. PIRAZINAMIDA ANTIBIOTICE [Concomitant]
     Dosage: 1750 MG, DAILY
     Dates: start: 20200416
  6. ETAMBUTOL ATB [Concomitant]
     Dosage: UNK (1400 MG/ DAY)
     Dates: start: 20200416
  7. LEVOFLOXACIN. [Concomitant]
     Active Substance: LEVOFLOXACIN
     Dosage: 250 MG, 4X/DAY
     Dates: start: 20200513

REACTIONS (2)
  - Paraesthesia [Recovering/Resolving]
  - Asthenia [Recovering/Resolving]

NARRATIVE: CASE EVENT DATE: 20200621
